FAERS Safety Report 25287870 (Version 1)
Quarter: 2025Q2

REPORT INFORMATION
  Report Type: Spontaneous
  Country: ES (occurrence: ES)
  Receive Date: 20250509
  Receipt Date: 20250509
  Transmission Date: 20250716
  Serious: Yes (Other)
  Sender: FRESENIUS KABI
  Company Number: None

PATIENT
  Age: 72 Year
  Sex: Male
  Weight: 68 kg

DRUGS (9)
  1. LEVOFLOXACIN [Suspect]
     Active Substance: LEVOFLOXACIN
     Indication: Pneumonia
     Dosage: FOA-SOLUTION FOR INJECTION
     Route: 042
     Dates: start: 20250227, end: 20250306
  2. CEFTRIAXONE [Suspect]
     Active Substance: CEFTRIAXONE
     Indication: Respiratory tract infection
     Dosage: FOA-POWDER FOR CONCENTRATE FOR SOLUTION FOR INJECTION/INFUSION
     Route: 042
     Dates: start: 20250226, end: 20250311
  3. OSELTAMIVIR [Suspect]
     Active Substance: OSELTAMIVIR
     Indication: Product used for unknown indication
     Dosage: FOA-CAPSULE, HARD
     Route: 048
     Dates: start: 20250226, end: 20250310
  4. AZITHROMYCIN [Suspect]
     Active Substance: AZITHROMYCIN
     Indication: Pneumonia
     Dosage: FOA-SOLUTION FOR INJECTION/INFUSION
     Route: 042
     Dates: start: 20250306, end: 20250309
  5. VORICONAZOLE [Suspect]
     Active Substance: VORICONAZOLE
     Indication: Product used for unknown indication
     Dosage: FOA-TABLET
     Route: 048
     Dates: start: 20250319, end: 20250323
  6. VORICONAZOLE [Suspect]
     Active Substance: VORICONAZOLE
     Dosage: FOA-TABLET
     Route: 048
     Dates: start: 20250324, end: 20250327
  7. AMBISOME LIPOSOMAL 50 MG powder for dispersion for infusion [Concomitant]
     Indication: Bronchopulmonary aspergillosis
     Dosage: FOA-POWDER FOR DISPERSION FOR INFUSION
     Route: 042
     Dates: start: 20250310, end: 20250319
  8. AMBISOME LIPOSOMAL 50 MG powder for dispersion for infusion [Concomitant]
     Dosage: FOA-POWDER FOR DISPERSION FOR INFUSION
     Route: 042
     Dates: start: 20250327, end: 20250404
  9. AMBISOME LIPOSOMAL 50 MG powder for dispersion for infusion [Concomitant]
     Dosage: FOA-POWDER FOR DISPERSION FOR INFUSION
     Route: 042
     Dates: start: 20250405

REACTIONS (1)
  - Toxic skin eruption [Recovered/Resolved]

NARRATIVE: CASE EVENT DATE: 20250327
